FAERS Safety Report 5331553-7 (Version None)
Quarter: 2007Q2

REPORT INFORMATION
  Report Type: 
  Country: None (occurrence: None)
  Receive Date: 20070522
  Receipt Date: 20070511
  Transmission Date: 20071010
  Serious: Yes (Other)
  Sender: FDA-Public Use
  Company Number: US-PFIZER INC-2007022751

PATIENT
  Sex: Male
  Weight: 95.7 kg

DRUGS (6)
  1. CHANTIX [Suspect]
     Indication: EX-SMOKER
     Route: 048
     Dates: start: 20070221, end: 20070101
  2. ZYPREXA [Concomitant]
     Dosage: DAILY DOSE:10MG-FREQ:DAILY
  3. LEXAPRO [Concomitant]
     Dosage: DAILY DOSE:20MG-FREQ:DAILY
  4. PRENATAL VITAMINS [Concomitant]
  5. PREVACID [Concomitant]
     Dosage: DAILY DOSE:30MG-FREQ:DAILY
  6. ALEVE [Concomitant]

REACTIONS (2)
  - HALLUCINATION [None]
  - PARANOIA [None]
